FAERS Safety Report 8876774 (Version 1)
Quarter: 2012Q4

REPORT INFORMATION
  Report Type: 
  Country: US (occurrence: US)
  Receive Date: 20121023
  Receipt Date: 20121023
  Transmission Date: 20130627
  Serious: Yes (Other)
  Sender: FDA-Public Use
  Company Number: US-AMGEN-USASP2012048672

PATIENT
  Age: 14 Year
  Sex: Female

DRUGS (1)
  1. ENBREL [Suspect]
     Indication: OSTEOMYELITIS
     Dosage: 50 mg, qwk
     Route: 058
     Dates: start: 201205

REACTIONS (1)
  - Osteomyelitis [Recovered/Resolved]
